FAERS Safety Report 8825517 (Version 1)
Quarter: 2012Q4

REPORT INFORMATION
  Report Type: 
  Country: US (occurrence: US)
  Receive Date: 20121004
  Receipt Date: 20121004
  Transmission Date: 20130627
  Serious: Yes (Other)
  Sender: FDA-Public Use
  Company Number: US-JHP PHARMACEUTICALS, LLC-JHP201200483

PATIENT
  Age: 25 Year
  Sex: Male
  Weight: 100 kg

DRUGS (7)
  1. KETALAR [Suspect]
     Indication: SEDATIVE THERAPY
     Dosage: 50 mg (0.5 mg/kg)
     Route: 042
  2. PROPOFOL [Concomitant]
     Dosage: 50 mg, UNK
     Route: 042
  3. MORPHINE [Concomitant]
     Indication: ANALGESIC THERAPY
     Dosage: 4 mg, X 2 doses
     Route: 042
  4. HYDROMORPHONE [Concomitant]
     Dosage: 1 mg, UNK
     Route: 042
  5. FENTANYL [Concomitant]
     Dosage: 50 ?g, UNK
     Route: 042
  6. ONDANSETRON [Concomitant]
     Indication: NAUSEA
     Dosage: 4 mg, x 2 doses
     Route: 042
  7. PROMETHAZINE [Concomitant]
     Indication: NAUSEA
     Dosage: 25 mg, UNK
     Route: 042

REACTIONS (1)
  - Waxy flexibility [Recovered/Resolved]
